FAERS Safety Report 20557209 (Version 1)
Quarter: 2022Q1

REPORT INFORMATION
  Report Type: Spontaneous
  Country: IR (occurrence: IR)
  Receive Date: 20220307
  Receipt Date: 20220307
  Transmission Date: 20220424
  Serious: Yes (Life-Threatening, Other)
  Sender: FDA-Public Use
  Company Number: IR-SUN PHARMACEUTICAL INDUSTRIES LTD-2022R1-328244

PATIENT
  Age: 66 Year
  Sex: Female

DRUGS (6)
  1. ATAZANAVIR\RITONAVIR [Suspect]
     Active Substance: ATAZANAVIR\RITONAVIR
     Indication: Antiviral treatment
     Dosage: 40 MILLIGRAM EVENING
     Route: 065
  2. ENOXAPARIN SODIUM [Suspect]
     Active Substance: ENOXAPARIN SODIUM
     Indication: Anticoagulant therapy
     Dosage: 60 MILLIGRAM, MORNING
     Route: 065
  3. HYDROXYCHLOROQUINE [Suspect]
     Active Substance: HYDROXYCHLOROQUINE
     Indication: Antiviral treatment
     Dosage: UNK
     Route: 065
  4. METHYLPREDNISOLONE [Suspect]
     Active Substance: METHYLPREDNISOLONE
     Indication: Product used for unknown indication
     Dosage: 60 MILLIGRAM, DAILY
     Route: 065
  5. NAPROXEN [Suspect]
     Active Substance: NAPROXEN
     Indication: Product used for unknown indication
     Dosage: UNK
     Route: 065
  6. REMDESIVIR [Suspect]
     Active Substance: REMDESIVIR
     Indication: Antiviral treatment
     Dosage: UNK
     Route: 065

REACTIONS (1)
  - Haemoperitoneum [Unknown]
